FAERS Safety Report 15147907 (Version 3)
Quarter: 2018Q4

REPORT INFORMATION
  Report Type: Spontaneous
  Country: US (occurrence: US)
  Receive Date: 20180716
  Receipt Date: 20181219
  Transmission Date: 20190204
  Serious: Yes (Other)
  Sender: FDA-Public Use
  Company Number: US-BAYER-2018-133700

PATIENT
  Age: 19 Year
  Sex: Female
  Weight: 83.9 kg

DRUGS (4)
  1. SKYLA [Suspect]
     Active Substance: LEVONORGESTREL
     Indication: INTRA-UTERINE CONTRACEPTIVE DEVICE INSERTION
     Dosage: 14 MCG/24HR, CONT
     Route: 015
     Dates: start: 20160426
  2. METROGEL [Concomitant]
     Active Substance: METRONIDAZOLE
  3. FLUCONAZOLE. [Concomitant]
     Active Substance: FLUCONAZOLE
  4. AMOXIL [AMOXICILLIN SODIUM] [Concomitant]

REACTIONS (5)
  - Abdominal pain lower [None]
  - Vaginal infection [None]
  - Device dislocation [None]
  - Uterine haemorrhage [None]
  - Genital haemorrhage [None]

NARRATIVE: CASE EVENT DATE: 20180620
